FAERS Safety Report 7549364-0 (Version None)
Quarter: 2011Q2

REPORT INFORMATION
  Report Type: 
  Country: None (occurrence: None)
  Receive Date: 20110615
  Receipt Date: 20030430
  Transmission Date: 20111010
  Serious: Yes (Death, Other)
  Sender: FDA-Public Use
  Company Number: PHHO2003NL05590

PATIENT
  Age: 83 Year
  Sex: Female

DRUGS (2)
  1. DIOVAN [Suspect]
     Indication: HYPERTENSION
     Dates: start: 20021220
  2. INDEROL [Concomitant]
     Dosage: 80 MG, QD

REACTIONS (2)
  - CEREBROVASCULAR ACCIDENT [None]
  - PNEUMONIA [None]
